FAERS Safety Report 15350817 (Version 1)
Quarter: 2018Q4

REPORT INFORMATION
  Report Type: Spontaneous
  Country: JP (occurrence: JP)
  Receive Date: 20180905
  Receipt Date: 20180905
  Transmission Date: 20190204
  Serious: Yes (Other)
  Sender: FDA-Public Use
  Company Number: JP-VIVIMED-2017SP015388

PATIENT

DRUGS (2)
  1. ZOPICLONE [Suspect]
     Active Substance: ZOPICLONE
     Indication: SLEEP DISORDER
     Dosage: 7.5 MG, EVERY NIGHT FOR THE LAST 2 WEEKS
     Route: 048
  2. ZOLPIDEM [Suspect]
     Active Substance: ZOLPIDEM\ZOLPIDEM TARTRATE
     Indication: SLEEP DISORDER
     Dosage: 10 MG, EVERY NIGHT FOR THE LAST 2 WEEKS
     Route: 048

REACTIONS (2)
  - Chorea [Recovered/Resolved]
  - Dyskinesia [Recovered/Resolved]
